FAERS Safety Report 7511291-2 (Version None)
Quarter: 2011Q2

REPORT INFORMATION
  Report Type: 
  Country: None (occurrence: None)
  Receive Date: 20110531
  Receipt Date: 20110518
  Transmission Date: 20111010
  Serious: Yes (Other)
  Sender: FDA-Public Use
  Company Number: CN-JNJFOC-20110509282

PATIENT
  Age: 9 Year
  Sex: Male

DRUGS (1)
  1. CONCERTA [Suspect]
     Indication: PSYCHOMOTOR HYPERACTIVITY
     Route: 048
     Dates: start: 20110516, end: 20110518

REACTIONS (4)
  - NASAL DISCOMFORT [None]
  - DECREASED APPETITE [None]
  - ORAL HERPES [None]
  - MIDDLE INSOMNIA [None]
